FAERS Safety Report 25680649 (Version 1)
Quarter: 2025Q3

REPORT INFORMATION
  Report Type: Spontaneous
  Country: US (occurrence: US)
  Receive Date: 20250814
  Receipt Date: 20250814
  Transmission Date: 20251020
  Serious: Yes (Life-Threatening, Hospitalization)
  Sender: MYLAN
  Company Number: US-MYLANLABS-2025M1067474

PATIENT
  Age: 72 Year
  Sex: Female

DRUGS (16)
  1. RIFAMPIN [Suspect]
     Active Substance: RIFAMPIN
     Indication: Pulmonary tuberculosis
  2. RIFAMPIN [Suspect]
     Active Substance: RIFAMPIN
     Route: 065
  3. RIFAMPIN [Suspect]
     Active Substance: RIFAMPIN
     Route: 065
  4. RIFAMPIN [Suspect]
     Active Substance: RIFAMPIN
  5. ISONIAZID [Suspect]
     Active Substance: ISONIAZID
     Indication: Pulmonary tuberculosis
  6. ISONIAZID [Suspect]
     Active Substance: ISONIAZID
     Route: 065
  7. ISONIAZID [Suspect]
     Active Substance: ISONIAZID
     Route: 065
  8. ISONIAZID [Suspect]
     Active Substance: ISONIAZID
  9. PYRAZINAMIDE [Suspect]
     Active Substance: PYRAZINAMIDE
     Indication: Pulmonary tuberculosis
  10. PYRAZINAMIDE [Suspect]
     Active Substance: PYRAZINAMIDE
     Route: 065
  11. PYRAZINAMIDE [Suspect]
     Active Substance: PYRAZINAMIDE
     Route: 065
  12. PYRAZINAMIDE [Suspect]
     Active Substance: PYRAZINAMIDE
  13. ETHAMBUTOL [Suspect]
     Active Substance: ETHAMBUTOL HYDROCHLORIDE
     Indication: Pulmonary tuberculosis
  14. ETHAMBUTOL [Suspect]
     Active Substance: ETHAMBUTOL HYDROCHLORIDE
     Route: 065
  15. ETHAMBUTOL [Suspect]
     Active Substance: ETHAMBUTOL HYDROCHLORIDE
     Route: 065
  16. ETHAMBUTOL [Suspect]
     Active Substance: ETHAMBUTOL HYDROCHLORIDE

REACTIONS (1)
  - Immune reconstitution inflammatory syndrome associated tuberculosis [Recovering/Resolving]
